FAERS Safety Report 6104966-3 (Version None)
Quarter: 2009Q1

REPORT INFORMATION
  Report Type: 
  Country: None (occurrence: None)
  Receive Date: 20090304
  Receipt Date: 20090304
  Transmission Date: 20090719
  Serious: Yes (Hospitalization)
  Sender: FDA-Public Use
  Company Number: None

PATIENT
  Age: 74 Year
  Sex: Male

DRUGS (3)
  1. WARFARIN SODIUM [Suspect]
     Indication: AORTIC VALVE REPLACEMENT
     Dosage: 7.5 MG EVERY DAY PO
     Route: 048
     Dates: start: 20081111
  2. WARFARIN SODIUM [Suspect]
     Indication: CORONARY ARTERY BYPASS
     Dosage: 7.5 MG EVERY DAY PO
     Route: 048
     Dates: start: 20081111
  3. WARFARIN SODIUM [Suspect]
     Indication: PULMONARY EMBOLISM
     Dosage: 7.5 MG EVERY DAY PO
     Route: 048
     Dates: start: 20081111

REACTIONS (8)
  - CHOLECYSTITIS [None]
  - COAGULOPATHY [None]
  - HAEMATURIA [None]
  - HAEMORRHAGE [None]
  - HEPATIC FUNCTION ABNORMAL [None]
  - HYPOPHAGIA [None]
  - INCORRECT DOSE ADMINISTERED [None]
  - THERAPEUTIC AGENT TOXICITY [None]
